FAERS Safety Report 9203456 (Version 1)
Quarter: 2013Q1

REPORT INFORMATION
  Report Type: Spontaneous
  Country: US (occurrence: None)
  Receive Date: 20130329
  Receipt Date: 20130329
  Transmission Date: 20140127
  Serious: No
  Sender: FDA-Public Use
  Company Number: None

PATIENT
  Age: 36 Year
  Sex: Male
  Weight: 144.7 kg

DRUGS (1)
  1. LITHIUM CARBONATE ER [Suspect]
     Indication: BIPOLAR I DISORDER

REACTIONS (5)
  - Malaise [None]
  - Headache [None]
  - Abdominal discomfort [None]
  - Product odour abnormal [None]
  - Product quality issue [None]
